FAERS Safety Report 9162153 (Version 1)
Quarter: 2013Q1

REPORT INFORMATION
  Report Type: Spontaneous
  Country: US (occurrence: US)
  Receive Date: 20130314
  Receipt Date: 20130314
  Transmission Date: 20140127
  Serious: Yes (Other)
  Sender: FDA-Public Use
  Company Number: US-BAYER-2013-031751

PATIENT
  Age: 18 Year
  Sex: Male

DRUGS (1)
  1. GADAVIST [Suspect]
     Dosage: UNK
     Route: 042
     Dates: start: 20130312, end: 20130312

REACTIONS (2)
  - Urticaria [Recovered/Resolved]
  - Urticaria [Recovered/Resolved]
